FAERS Safety Report 5819331-3 (Version None)
Quarter: 2008Q3

REPORT INFORMATION
  Report Type: 
  Country: None (occurrence: None)
  Receive Date: 20080723
  Receipt Date: 20080716
  Transmission Date: 20090109
  Serious: Yes (Hospitalization)
  Sender: FDA-Public Use
  Company Number: US-ASTRAZENECA-2008UW14256

PATIENT
  Age: 19 Year
  Sex: Female

DRUGS (4)
  1. CRESTOR [Suspect]
     Indication: BLOOD CHOLESTEROL ABNORMAL
     Route: 048
  2. ZETIA [Suspect]
     Indication: BLOOD CHOLESTEROL ABNORMAL
  3. WELLBUTRIN [Concomitant]
  4. BIRTH CONTROL PILLS [Concomitant]

REACTIONS (2)
  - DEHYDRATION [None]
  - HEPATIC ENZYME INCREASED [None]
